FAERS Safety Report 20012256 (Version 1)
Quarter: 2021Q4

REPORT INFORMATION
  Report Type: Other
  Country: US (occurrence: US)
  Receive Date: 20211029
  Receipt Date: 20211029
  Transmission Date: 20220303
  Serious: Yes (Hospitalization, Other)
  Sender: FDA-Public Use
  Company Number: US-ROCHE-2940072

PATIENT
  Sex: Female

DRUGS (29)
  1. OCREVUS [Suspect]
     Active Substance: OCRELIZUMAB
     Indication: Relapsing-remitting multiple sclerosis
     Dosage: ONGOING NO ONLY HAD 1 DOSE
     Route: 042
     Dates: start: 20200103, end: 20200103
  2. OCREVUS [Suspect]
     Active Substance: OCRELIZUMAB
     Indication: Secondary progressive multiple sclerosis
  3. TRAMADOL HCL [Concomitant]
     Active Substance: TRAMADOL HYDROCHLORIDE
  4. METHOCARBAMOL [Concomitant]
     Active Substance: METHOCARBAMOL
  5. CLONAZEPAM [Concomitant]
     Active Substance: CLONAZEPAM
     Route: 048
  6. TOPAMAX [Concomitant]
     Active Substance: TOPIRAMATE
  7. GABAPENTIN [Concomitant]
     Active Substance: GABAPENTIN
  8. BACLOFEN [Concomitant]
     Active Substance: BACLOFEN
  9. VOLTAREN [Concomitant]
     Active Substance: DICLOFENAC SODIUM
  10. ACIDOPHILUS [Concomitant]
     Active Substance: LACTOBACILLUS ACIDOPHILUS
  11. AMITRIPTYLINE [Concomitant]
     Active Substance: AMITRIPTYLINE
  12. ATORVASTATIN CALCIUM [Concomitant]
     Active Substance: ATORVASTATIN CALCIUM
  13. ASCORBIC ACID [Concomitant]
     Active Substance: ASCORBIC ACID
  14. BUTALBITAL [Concomitant]
     Active Substance: BUTALBITAL
  15. CETIRIZINE HYDROCHLORIDE [Concomitant]
     Active Substance: CETIRIZINE HYDROCHLORIDE
  16. PLAVIX [Concomitant]
     Active Substance: CLOPIDOGREL BISULFATE
  17. FUROSEMIDE [Concomitant]
     Active Substance: FUROSEMIDE
  18. OXYBUTYNIN CHLORIDE [Concomitant]
     Active Substance: OXYBUTYNIN CHLORIDE
  19. PANTOPRAZOLE SODIUM [Concomitant]
     Active Substance: PANTOPRAZOLE SODIUM
  20. HYDROMORPHONE HYDROCHLORIDE [Concomitant]
     Active Substance: HYDROMORPHONE HYDROCHLORIDE
  21. LEVOFLOXACIN [Concomitant]
     Active Substance: LEVOFLOXACIN
  22. FLUOXETINE [Concomitant]
     Active Substance: FLUOXETINE HYDROCHLORIDE
  23. CLINDAMYCIN HYDROCHLORIDE [Concomitant]
     Active Substance: CLINDAMYCIN HYDROCHLORIDE
  24. IBUPROFEN [Concomitant]
     Active Substance: IBUPROFEN
  25. IPRATROPIUM BROMIDE [Concomitant]
     Active Substance: IPRATROPIUM BROMIDE
  26. MORPHINE SULFATE [Concomitant]
     Active Substance: MORPHINE SULFATE
  27. MACRODANTIN [Concomitant]
     Active Substance: NITROFURANTOIN
  28. PNEUMOCOCCAL VACCINE 7V [Concomitant]
  29. CODEINE SULFATE [Concomitant]
     Active Substance: CODEINE SULFATE

REACTIONS (2)
  - Urinary tract infection [Unknown]
  - Cellulitis [Unknown]
